FAERS Safety Report 20490421 (Version 1)
Quarter: 2022Q1

REPORT INFORMATION
  Report Type: Spontaneous
  Country: CN (occurrence: CN)
  Receive Date: 20220218
  Receipt Date: 20220218
  Transmission Date: 20220423
  Serious: Yes (Other)
  Sender: FDA-Public Use
  Company Number: CN-ABBVIE-22K-035-4282103-00

PATIENT
  Age: 28 Year
  Sex: Male
  Weight: 61 kg

DRUGS (1)
  1. VALPROATE SODIUM [Suspect]
     Active Substance: VALPROATE SODIUM
     Indication: Epileptic psychosis
     Route: 048
     Dates: start: 20190429, end: 20190506

REACTIONS (2)
  - Cognitive disorder [Recovering/Resolving]
  - Confusional state [Recovering/Resolving]
